FAERS Safety Report 4437499-0 (Version None)
Quarter: 2004Q3

REPORT INFORMATION
  Report Type: 
  Country: None (occurrence: None)
  Receive Date: 20040831
  Receipt Date: 20040823
  Transmission Date: 20050211
  Serious: Yes (Death)
  Sender: FDA-Public Use
  Company Number: US-JNJFOC-20040807835

PATIENT
  Sex: Female
  Weight: 77.11 kg

DRUGS (6)
  1. INFLIXIMAB [Suspect]
     Indication: RHEUMATOID ARTHRITIS
     Route: 042
  2. AVAPRO [Concomitant]
  3. OGEN [Concomitant]
  4. FOLIC ACID [Concomitant]
  5. SYNTHROID [Concomitant]
  6. CELEXA [Concomitant]

REACTIONS (1)
  - LUNG NEOPLASM MALIGNANT [None]
